FAERS Safety Report 16926233 (Version 1)
Quarter: 2019Q4

REPORT INFORMATION
  Report Type: Spontaneous
  Country: GB (occurrence: GB)
  Receive Date: 20191016
  Receipt Date: 20191016
  Transmission Date: 20200122
  Serious: Yes (Disabling, Other)
  Sender: FDA-Public Use
  Company Number: GB-MYLANLABS-2019M1097259

PATIENT
  Age: 15 Year
  Sex: Male
  Weight: 63.4 kg

DRUGS (1)
  1. ISOTRETINOIN. [Suspect]
     Active Substance: ISOTRETINOIN
     Indication: ACNE
     Dosage: 20 MILLIGRAM, INCREASED UP TO 20MG
     Route: 048
     Dates: start: 20180901, end: 20190101

REACTIONS (3)
  - Disturbance in attention [Recovering/Resolving]
  - Educational problem [Recovering/Resolving]
  - Abnormal behaviour [Recovering/Resolving]

NARRATIVE: CASE EVENT DATE: 20180901
